FAERS Safety Report 18734863 (Version 1)
Quarter: 2021Q1

REPORT INFORMATION
  Report Type: Spontaneous
  Country: US (occurrence: US)
  Receive Date: 20210113
  Receipt Date: 20210113
  Transmission Date: 20210419
  Serious: Yes (Death, Hospitalization)
  Sender: FDA-Public Use
  Company Number: US-JNJFOC-20210115116

PATIENT
  Sex: Female

DRUGS (1)
  1. XARELTO [Suspect]
     Active Substance: RIVAROXABAN
     Indication: ILLNESS
     Route: 048

REACTIONS (5)
  - Blindness unilateral [Unknown]
  - Cerebrovascular accident [Unknown]
  - Hospitalisation [Unknown]
  - SARS-CoV-2 test positive [Unknown]
  - Dyspnoea [Fatal]

NARRATIVE: CASE EVENT DATE: 20210104
